FAERS Safety Report 12911663 (Version 1)
Quarter: 2016Q4

REPORT INFORMATION
  Report Type: Spontaneous
  Country: US (occurrence: US)
  Receive Date: 20161103
  Receipt Date: 20161103
  Transmission Date: 20170207
  Serious: Yes (Disabling)
  Sender: FDA-Public Use
  Company Number: None

PATIENT
  Age: 52 Year
  Sex: Female
  Weight: 61.2 kg

DRUGS (2)
  1. SERTALINE [Suspect]
     Active Substance: SERTRALINE HYDROCHLORIDE
     Dosage: ?          QUANTITY:1 TABLET(S);?
     Route: 048
     Dates: start: 20081101
  2. MULTIVITAMIN [Concomitant]
     Active Substance: VITAMINS

REACTIONS (8)
  - Emotional distress [None]
  - Impaired work ability [None]
  - Drug withdrawal syndrome [None]
  - Vision blurred [None]
  - Feeling abnormal [None]
  - Dizziness [None]
  - Malaise [None]
  - Anxiety [None]

NARRATIVE: CASE EVENT DATE: 20160801
